FAERS Safety Report 4765190-X (Version None)
Quarter: 2005Q3

REPORT INFORMATION
  Report Type: 
  Country: None (occurrence: None)
  Receive Date: 20050906
  Receipt Date: 20050818
  Transmission Date: 20060218
  Serious: Yes (Hospitalization, Other)
  Sender: FDA-Public Use
  Company Number: USA0508105828

PATIENT
  Age: 69 Year
  Sex: Female
  Weight: 83 kg

DRUGS (20)
  1. CYMBALTA [Suspect]
     Indication: NEUROPATHY
     Dosage: 40 MG IN THE MORNING
     Dates: start: 20050527
  2. SYNTHROID [Concomitant]
  3. OSCAL 500-D [Concomitant]
  4. SUCRALFATER (VENLAFAXINE HYDROCHLORIDE) [Concomitant]
  5. NOVOLOG [Concomitant]
  6. LANTUS [Concomitant]
  7. PHOSLO [Concomitant]
  8. NITRO-DUR [Concomitant]
  9. MINOXIDIL [Concomitant]
  10. PREVACID [Concomitant]
  11. NEPHROCAPS [Concomitant]
  12. CATAPRES [Concomitant]
  13. TENORMIN [Concomitant]
  14. ZESTRIL [Concomitant]
  15. COMBIVENT [Concomitant]
  16. TYLENOL [Concomitant]
  17. ULTRAM (TRAMADOL HYDROCHLROIDE) [Concomitant]
  18. XANAX [Concomitant]
  19. PHENERGAN [Concomitant]
  20. ARANESP [Concomitant]

REACTIONS (7)
  - BLOOD PRESSURE INCREASED [None]
  - HEADACHE [None]
  - LETHARGY [None]
  - MALAISE [None]
  - MENTAL STATUS CHANGES [None]
  - PAIN IN EXTREMITY [None]
  - VOMITING [None]
